FAERS Safety Report 20298289 (Version 1)
Quarter: 2022Q1

REPORT INFORMATION
  Report Type: Spontaneous
  Country: CN (occurrence: CN)
  Receive Date: 20220105
  Receipt Date: 20220105
  Transmission Date: 20220423
  Serious: Yes (Other)
  Sender: FDA-Public Use
  Company Number: CN-BAXTER-2021BAX042534

PATIENT
  Age: 49 Year
  Sex: Female
  Weight: 57 kg

DRUGS (7)
  1. CYCLOPHOSPHAMIDE [Suspect]
     Active Substance: CYCLOPHOSPHAMIDE
     Indication: Breast cancer female
     Dosage: CYCLOPHOSPHAMIDE 0.8 G + 0.9% SODIUM CHLORIDE 100 ML (D 1)
     Route: 041
     Dates: start: 20210803, end: 20210803
  2. CYCLOPHOSPHAMIDE [Suspect]
     Active Substance: CYCLOPHOSPHAMIDE
     Dosage: DOSE RE-INTRODUCED, CYCLOPHOSPHAMIDE + 0.9% SODIUM CHLORIDE INJECTION
     Route: 041
  3. SODIUM CHLORIDE [Suspect]
     Active Substance: SODIUM CHLORIDE
     Indication: Medication dilution
     Dosage: CYCLOPHOSPHAMIDE 0.8 G + 0.9% SODIUM CHLORIDE 100ML (D 1)
     Route: 041
     Dates: start: 20210803, end: 20210803
  4. SODIUM CHLORIDE [Suspect]
     Active Substance: SODIUM CHLORIDE
     Dosage: EPIRUBICIN HYDROCHLORIDE 130 MG + 0.9% SODIUM CHLORIDE 100ML (D 1)
     Route: 041
     Dates: start: 20210803, end: 20210803
  5. SODIUM CHLORIDE [Suspect]
     Active Substance: SODIUM CHLORIDE
     Dosage: DOSE RE-INTRODUCED, EPIRUBICIN AND CYCLOPHOSPHAMIDE DILUTED WITH 0.9% SODIUM CHLORIDE
     Route: 041
  6. EPIRUBICIN HYDROCHLORIDE [Suspect]
     Active Substance: EPIRUBICIN HYDROCHLORIDE
     Indication: Breast cancer female
     Dosage: EPIRUBICIN HYDROCHLORIDE 130 MG + 0.9% SODIUM CHLORIDE 100ML (DAY 1)
     Route: 041
     Dates: start: 20210803, end: 20210803
  7. EPIRUBICIN HYDROCHLORIDE [Suspect]
     Active Substance: EPIRUBICIN HYDROCHLORIDE
     Dosage: DOSE RE-INTRODUCED, EPIRUBICIN HYDROCHLORIDE DILUTED WITH 0.9% SODIUM CHLORIDE
     Route: 041

REACTIONS (3)
  - Myelosuppression [Recovering/Resolving]
  - Myelosuppression [Recovering/Resolving]
  - Granulocyte count decreased [Recovering/Resolving]

NARRATIVE: CASE EVENT DATE: 20210905
